FAERS Safety Report 9586614 (Version 1)
Quarter: 2013Q4

REPORT INFORMATION
  Report Type: Report from Study
  Country: US (occurrence: US)
  Receive Date: 20131003
  Receipt Date: 20131003
  Transmission Date: 20140711
  Serious: Yes (Hospitalization)
  Sender: FDA-Public Use
  Company Number: US-ASTRAZENECA-2013SE71681

PATIENT
  Age: 20611 Day
  Sex: Male
  Weight: 88.2 kg

DRUGS (7)
  1. ZD6474 [Suspect]
     Indication: ANAPLASTIC ASTROCYTOMA
     Route: 048
     Dates: start: 20130815, end: 20130922
  2. CARBOPLATIN [Suspect]
     Indication: ANAPLASTIC ASTROCYTOMA
     Route: 042
     Dates: start: 20130815, end: 20130815
  3. CARBOPLATIN [Suspect]
     Indication: ANAPLASTIC ASTROCYTOMA
     Route: 042
     Dates: start: 20130912, end: 20130912
  4. KEPPRA [Concomitant]
  5. VIMAPAT [Concomitant]
  6. DECADRON [Concomitant]
  7. OMEPRAZOLE [Concomitant]

REACTIONS (1)
  - Convulsion [Unknown]
